FAERS Safety Report 4677025-4 (Version None)
Quarter: 2005Q2

REPORT INFORMATION
  Report Type: 
  Country: None (occurrence: None)
  Receive Date: 20050526
  Receipt Date: 20050406
  Transmission Date: 20051028
  Serious: Yes (Hospitalization)
  Sender: FDA-Public Use
  Company Number: WAES 0504USA00758

PATIENT
  Age: 58 Year
  Sex: Male

DRUGS (10)
  1. VYTORIN [Suspect]
     Indication: HYPERLIPIDAEMIA
     Dosage: 10-20 MG/DAILY/PO
     Route: 048
     Dates: start: 20041201, end: 20050207
  2. ACTONEL [Concomitant]
  3. COUMADIN [Concomitant]
  4. INSPRA [Concomitant]
  5. LANOXIN [Concomitant]
  6. LASIX [Concomitant]
  7. LISINOPRIL-BC [Concomitant]
  8. PROTONIX [Concomitant]
  9. ASPIRIN [Concomitant]
  10. METOPROLOL [Concomitant]

REACTIONS (3)
  - ABDOMINAL PAIN [None]
  - CHOLELITHIASIS [None]
  - HEPATITIS [None]
